FAERS Safety Report 5950677-4 (Version None)
Quarter: 2008Q4

REPORT INFORMATION
  Report Type: 
  Country: None (occurrence: None)
  Receive Date: 20081112
  Receipt Date: 20081031
  Transmission Date: 20090506
  Serious: Yes (Hospitalization, Other)
  Sender: FDA-Public Use
  Company Number: IT-GENENTECH-271094

PATIENT
  Sex: Female

DRUGS (5)
  1. BEVACIZUMAB [Suspect]
     Indication: BREAST CANCER
     Dosage: 930 MG, Q21D
     Route: 042
     Dates: start: 20080925
  2. DOXORUBICIN HCL [Suspect]
     Indication: BREAST CANCER
     Dosage: 100 MG, Q21D
     Route: 042
     Dates: start: 20080925
  3. CYCLOPHOSPHAMIDE [Suspect]
     Indication: BREAST CANCER
     Dosage: 1000 MG, Q21D
     Route: 042
     Dates: start: 20080925
  4. DAFLON (BELGIUM) [Concomitant]
     Indication: DRUG USE FOR UNKNOWN INDICATION
     Dosage: UNK
     Dates: start: 20081001, end: 20081010
  5. LEVOFLOXACIN [Concomitant]
     Indication: DRUG USE FOR UNKNOWN INDICATION
     Dosage: UNK
     Dates: start: 20081008

REACTIONS (3)
  - HYPERPYREXIA [None]
  - PAIN [None]
  - PROCTITIS [None]
